FAERS Safety Report 8448121-0 (Version None)
Quarter: 2012Q2

REPORT INFORMATION
  Report Type: 
  Country: None (occurrence: None)
  Receive Date: 20120612
  Receipt Date: 20120604
  Transmission Date: 20120825
  Serious: Yes (Hospitalization, Disabling)
  Sender: FDA-Public Use
  Company Number: DSA_56104_2012

PATIENT
  Sex: Female

DRUGS (3)
  1. XENAZINE [Suspect]
     Indication: DYSTONIA
     Dosage: (12.5 MG TID ORAL), (25 MG TID ORAL)
     Route: 048
     Dates: start: 20120301, end: 20120101
  2. XENAZINE [Suspect]
     Indication: DYSTONIA
     Dosage: (12.5 MG TID ORAL), (25 MG TID ORAL)
     Route: 048
     Dates: start: 20120301, end: 20120301
  3. XENAZINE [Suspect]
     Indication: DYSTONIA
     Dosage: (12.5 MG TID ORAL), (25 MG TID ORAL)
     Route: 048
     Dates: start: 20120101

REACTIONS (3)
  - CRYING [None]
  - DYSTONIA [None]
  - MUSCLE SPASMS [None]
